FAERS Safety Report 12969106 (Version 1)
Quarter: 2016Q4

REPORT INFORMATION
  Report Type: Spontaneous
  Country: CH (occurrence: GB)
  Receive Date: 20161123
  Receipt Date: 20161123
  Transmission Date: 20170207
  Serious: Yes (Other)
  Sender: FDA-Public Use
  Company Number: CH-LPDUSPRD-20161038

PATIENT
  Age: 44 Year
  Sex: Female

DRUGS (1)
  1. FERINJECT [Suspect]
     Active Substance: FERRIC CARBOXYMALTOSE
     Dosage: 500 MG OVER UNKNOWN
     Route: 041
     Dates: start: 20161031

REACTIONS (14)
  - Nausea [Unknown]
  - Gastrointestinal wall thickening [Unknown]
  - Blood lactic acid increased [Unknown]
  - Splenomegaly [Unknown]
  - Colitis [Unknown]
  - Pelvic fluid collection [Unknown]
  - Vomiting [Unknown]
  - Coma scale abnormal [Unknown]
  - Intra-abdominal fluid collection [Unknown]
  - Hepatic cirrhosis [Unknown]
  - Inflammation [Unknown]
  - Ascites [Unknown]
  - Portal hypertension [Unknown]
  - Melaena [Unknown]

NARRATIVE: CASE EVENT DATE: 20161101
